FAERS Safety Report 8124510-9 (Version None)
Quarter: 2012Q1

REPORT INFORMATION
  Report Type: 
  Country: None (occurrence: None)
  Receive Date: 20120209
  Receipt Date: 20120130
  Transmission Date: 20120608
  Serious: Yes (Hospitalization, Other)
  Sender: FDA-Public Use
  Company Number: US-ELI_LILLY_AND_COMPANY-US201111002720

PATIENT
  Sex: Female

DRUGS (8)
  1. ANALGESICS [Concomitant]
     Indication: PAIN
  2. MUSCLE RELAXANTS [Concomitant]
  3. CALCIUM CITRATE [Concomitant]
  4. INSULIN [Concomitant]
  5. FORTEO [Suspect]
     Dosage: 20 UG, QD
  6. FORTEO [Suspect]
     Indication: OSTEOPOROSIS
     Dosage: 20 UG, QD
  7. ASPIRIN [Concomitant]
  8. FORTEO [Suspect]
     Dosage: 20 UG, QD
     Route: 065

REACTIONS (19)
  - PYREXIA [None]
  - OROPHARYNGEAL PAIN [None]
  - ARTHRALGIA [None]
  - CONSTIPATION [None]
  - VOMITING [None]
  - BLOOD GLUCOSE ABNORMAL [None]
  - DRUG DOSE OMISSION [None]
  - FALL [None]
  - MALAISE [None]
  - FATIGUE [None]
  - NASOPHARYNGITIS [None]
  - NAUSEA [None]
  - DEHYDRATION [None]
  - FEELING ABNORMAL [None]
  - NASAL CONGESTION [None]
  - RASH [None]
  - COUGH [None]
  - DIZZINESS [None]
  - BACK DISORDER [None]
